FAERS Safety Report 10647108 (Version 1)
Quarter: 2014Q4

REPORT INFORMATION
  Report Type: Spontaneous
  Country: US (occurrence: None)
  Receive Date: 20141205
  Receipt Date: 20141205
  Transmission Date: 20150529
  Serious: No
  Sender: FDA-Public Use
  Company Number: USA-2014104505

PATIENT
  Age: 84 Year
  Sex: Male
  Weight: 72.58 kg

DRUGS (1)
  1. POMALYST [Suspect]
     Active Substance: POMALIDOMIDE
     Indication: PLASMA CELL MYELOMA
     Dosage: 2 MG,  21 IN 21 D, PO
     Route: 048
     Dates: start: 20140630

REACTIONS (1)
  - Eye discharge [None]

NARRATIVE: CASE EVENT DATE: 2014
